FAERS Safety Report 7348074-2 (Version None)
Quarter: 2011Q1

REPORT INFORMATION
  Report Type: 
  Country: None (occurrence: None)
  Receive Date: 20110311
  Receipt Date: 20110308
  Transmission Date: 20110831
  Serious: Yes (Disabling)
  Sender: FDA-Public Use
  Company Number: FR-PFIZER INC-2011050134

PATIENT
  Age: 56 Year
  Sex: Male

DRUGS (2)
  1. LIPANTHYL [Concomitant]
     Dosage: 145 MG, 1X/DAY
     Dates: start: 20100623, end: 20100908
  2. TAHOR [Suspect]
     Indication: HYPERCHOLESTEROLAEMIA
     Dosage: 10 MG, 1X/DAY
     Route: 048
     Dates: start: 20000110, end: 20100119

REACTIONS (2)
  - TENDON RUPTURE [None]
  - LIGAMENT RUPTURE [None]
